FAERS Safety Report 9365976 (Version 1)
Quarter: 2013Q2

REPORT INFORMATION
  Report Type: Spontaneous
  Country: US (occurrence: US)
  Receive Date: 20130625
  Receipt Date: 20130625
  Transmission Date: 20140414
  Serious: No
  Sender: FDA-Public Use
  Company Number: US-PFIZER INC-2013183574

PATIENT
  Age: 60 Year
  Sex: Male
  Weight: 113 kg

DRUGS (13)
  1. XALKORI [Suspect]
     Dosage: 250 MG, 2X/DAY
     Route: 048
  2. AVAPRO [Concomitant]
     Dosage: 150 MG, UNK
  3. TOPROL XL [Concomitant]
     Dosage: 100 MG, UNK
  4. ALLOPURINOL [Concomitant]
     Dosage: 100 MG, UNK
  5. LORTAB [Concomitant]
     Dosage: 10-500MG, UNK
  6. NEXIUM [Concomitant]
     Dosage: 20 MG, UNK
  7. SERTRALINE [Concomitant]
     Dosage: 25 MG, UNK
  8. POTASSIUM [Concomitant]
     Dosage: 25 MEQ
  9. MOTRIN [Concomitant]
     Dosage: 400 MG, UNK
  10. ASPIRIN ADLT [Concomitant]
     Dosage: 81 MG, UNK
  11. VALIUM [Concomitant]
     Dosage: 2 MG, UNK
  12. DULERA [Concomitant]
     Dosage: 100/5 MCG, UNK
  13. NASONEX [Concomitant]
     Dosage: 50 MCG/AC, UNK

REACTIONS (3)
  - Myalgia [Unknown]
  - Urine abnormality [Unknown]
  - Vision blurred [Unknown]
